FAERS Safety Report 25194559 (Version 1)
Quarter: 2025Q2

REPORT INFORMATION
  Report Type: Spontaneous
  Country: JP (occurrence: JP)
  Receive Date: 20250414
  Receipt Date: 20250414
  Transmission Date: 20250716
  Serious: Yes (Hospitalization)
  Sender: MERCK SHARP AND DOHME
  Company Number: JP-009507513-2263017

PATIENT
  Age: 52 Year
  Sex: Female
  Weight: 41 kg

DRUGS (4)
  1. KEYTRUDA [Suspect]
     Active Substance: PEMBROLIZUMAB
     Indication: Cervix carcinoma stage III
     Route: 041
     Dates: start: 20250109, end: 20250130
  2. KEYTRUDA [Suspect]
     Active Substance: PEMBROLIZUMAB
     Indication: Cervix carcinoma stage III
     Route: 041
     Dates: start: 20250220
  3. CISPLATIN [Concomitant]
     Active Substance: CISPLATIN
     Indication: Cervix carcinoma stage III
     Route: 041
     Dates: end: 20250206
  4. CISPLATIN [Concomitant]
     Active Substance: CISPLATIN
     Indication: Cervix carcinoma stage III
     Route: 041
     Dates: start: 20250213

REACTIONS (2)
  - Herpes zoster [Recovered/Resolved]
  - Drug eruption [Recovering/Resolving]

NARRATIVE: CASE EVENT DATE: 20250130
